FAERS Safety Report 5462426-7 (Version None)
Quarter: 2007Q3

REPORT INFORMATION
  Report Type: 
  Country: None (occurrence: None)
  Receive Date: 20070920
  Receipt Date: 20070907
  Transmission Date: 20080115
  Serious: Yes (Other)
  Sender: FDA-Public Use
  Company Number: CA-ASTRAZENECA-2001UW01755

PATIENT
  Age: 78 Year
  Sex: Female
  Weight: 91.4 kg

DRUGS (11)
  1. ARIMIDEX [Suspect]
     Indication: BREAST CANCER
     Route: 048
     Dates: start: 20000726
  2. ARIMIDEX [Suspect]
     Route: 048
     Dates: start: 20000101
  3. NOLVADEX [Suspect]
     Indication: BREAST CANCER
     Route: 048
     Dates: start: 19880901, end: 19940101
  4. TAMOXIFEN CITRATE [Suspect]
     Indication: BREAST CANCER
     Route: 048
     Dates: start: 19940101, end: 20000801
  5. ASPIRIN [Concomitant]
     Indication: TRANSIENT ISCHAEMIC ATTACK
     Dates: start: 19950101
  6. ZANTAC 150 [Concomitant]
     Indication: ULCER
     Route: 048
     Dates: start: 20001011
  7. ZESTRIL [Concomitant]
     Route: 048
  8. MELOXICAM [Concomitant]
     Route: 048
  9. EZETROL [Concomitant]
     Route: 048
  10. FENTANYL [Concomitant]
     Route: 048
  11. RABEPRAZOLE SODIUM [Concomitant]
     Route: 048

REACTIONS (6)
  - BLISTER [None]
  - CARPAL TUNNEL SYNDROME [None]
  - DYSPNOEA [None]
  - HOT FLUSH [None]
  - NIGHT SWEATS [None]
  - WEIGHT INCREASED [None]
